FAERS Safety Report 9840226 (Version 1)
Quarter: 2014Q1

REPORT INFORMATION
  Report Type: Spontaneous
  Country: IT (occurrence: IT)
  Receive Date: 20140124
  Receipt Date: 20140124
  Transmission Date: 20141002
  Serious: Yes (Death)
  Sender: FDA-Public Use
  Company Number: IT-SA-2014SA007043

PATIENT
  Age: 72 Year
  Sex: Male

DRUGS (3)
  1. JEVTANA [Suspect]
     Indication: PROSTATE CANCER METASTATIC
     Route: 042
     Dates: start: 20130523, end: 20130523
  2. JEVTANA [Suspect]
     Indication: PROSTATE CANCER METASTATIC
     Route: 042
     Dates: start: 20140103, end: 20140103
  3. DELTACORTENE [Concomitant]

REACTIONS (1)
  - Haemoptysis [Fatal]
